FAERS Safety Report 5504018-7 (Version None)
Quarter: 2007Q4

REPORT INFORMATION
  Report Type: 
  Country: None (occurrence: None)
  Receive Date: 20071101
  Receipt Date: 20071021
  Transmission Date: 20080405
  Serious: Yes (Other)
  Sender: FDA-Public Use
  Company Number: US-JNJFOC-20071006410

PATIENT
  Sex: Male

DRUGS (3)
  1. TYLENOL (CAPLET) [Suspect]
  2. TYLENOL (CAPLET) [Suspect]
     Indication: SEDATION
     Dosage: EXTRA, LONG TERM
  3. UNSPECIFIED MEDICATIONS [Suspect]
     Indication: SEDATION

REACTIONS (2)
  - LEARNING DISABILITY [None]
  - OVERDOSE [None]
